FAERS Safety Report 7749275-1 (Version None)
Quarter: 2011Q3

REPORT INFORMATION
  Report Type: 
  Country: None (occurrence: None)
  Receive Date: 20110914
  Receipt Date: 20110907
  Transmission Date: 20111222
  Serious: Yes (Hospitalization, Other)
  Sender: FDA-Public Use
  Company Number: US-PFIZER INC-2011209955

PATIENT
  Sex: Male
  Weight: 81.633 kg

DRUGS (2)
  1. CELEBREX [Suspect]
     Indication: MUSCLE SPASMS
     Dosage: 50 MG, AS NEEDED
     Route: 048
     Dates: start: 20090101
  2. CELEBREX [Suspect]
     Indication: JOINT STIFFNESS
     Dosage: UNK
     Route: 048
     Dates: end: 20110817

REACTIONS (7)
  - ERYTHEMA [None]
  - SKIN EXFOLIATION [None]
  - PRURITUS GENERALISED [None]
  - HYPERSENSITIVITY [None]
  - DEHYDRATION [None]
  - BLOOD IMMUNOGLOBULIN E INCREASED [None]
  - SWELLING [None]
